FAERS Safety Report 17112728 (Version 1)
Quarter: 2019Q4

REPORT INFORMATION
  Report Type: Spontaneous
  Country: JP (occurrence: JP)
  Receive Date: 20191204
  Receipt Date: 20191204
  Transmission Date: 20200122
  Serious: Yes (Death)
  Sender: FDA-Public Use
  Company Number: JP-BAUSCH-BL-2019-062695

PATIENT
  Age: 83 Year
  Sex: Female

DRUGS (6)
  1. PREDNISOLONE. [Suspect]
     Active Substance: PREDNISOLONE
     Indication: COLITIS
     Dosage: STARTED ON HOSPITAL DAY 49
     Route: 065
  2. PREDNISOLONE. [Suspect]
     Active Substance: PREDNISOLONE
     Dosage: GRADUALLY DECREASED
     Route: 065
  3. PREDNISOLONE. [Suspect]
     Active Substance: PREDNISOLONE
     Route: 065
  4. VANCOMYCIN [Concomitant]
     Active Substance: VANCOMYCIN
     Indication: STAPHYLOCOCCAL INFECTION
     Dosage: ON HOSPITAL DAY 90, VANCOMYCIN WAS STOPPED
  5. PIPERACILLIN/TAZOBACTAM [Concomitant]
     Active Substance: PIPERACILLIN SODIUM\TAZOBACTAM SODIUM
     Indication: COLITIS
     Dosage: ON HOSPITAL DAY 20, PIPERACILLIN AND TAZOBACTAM WERE STARTED
  6. VANCOMYCIN [Concomitant]
     Active Substance: VANCOMYCIN
     Dosage: ON HOSPITAL DAY 116, ADMINISTRATION OF VANCOMYCIN WAS RESTARTED

REACTIONS (1)
  - Infective aortitis [Fatal]
